FAERS Safety Report 14015875 (Version 1)
Quarter: 2017Q3

REPORT INFORMATION
  Report Type: Report from Study
  Country: US (occurrence: US)
  Receive Date: 20170927
  Receipt Date: 20170927
  Transmission Date: 20171128
  Serious: Yes (Hospitalization, Other)
  Sender: FDA-Public Use
  Company Number: US-GILEAD-2017-0295448

PATIENT
  Age: 52 Year
  Sex: Female

DRUGS (3)
  1. REVATIO [Concomitant]
     Active Substance: SILDENAFIL CITRATE
  2. AMBRISENTAN [Suspect]
     Active Substance: AMBRISENTAN
     Indication: PRODUCT USED FOR UNKNOWN INDICATION
     Dosage: 10 MG, QD
     Route: 065
  3. DILTIAZEM. [Concomitant]
     Active Substance: DILTIAZEM

REACTIONS (6)
  - Dyspnoea [Unknown]
  - Pneumonia [Unknown]
  - Dizziness [Unknown]
  - Oedema peripheral [Unknown]
  - Pain [Unknown]
  - Renal disorder [Unknown]
